FAERS Safety Report 18422319 (Version 1)
Quarter: 2020Q4

REPORT INFORMATION
  Report Type: Report from Study
  Country: US (occurrence: US)
  Receive Date: 20201024
  Receipt Date: 20201024
  Transmission Date: 20210114
  Serious: No
  Sender: FDA-Public Use
  Company Number: US-B.I. PHARMACEUTICALS,INC./RIDGEFIELD-2020-BI-014357

PATIENT
  Age: 75 Year
  Sex: Male

DRUGS (2)
  1. OFEV [Suspect]
     Active Substance: NINTEDANIB
     Route: 048
  2. OFEV [Suspect]
     Active Substance: NINTEDANIB
     Indication: IDIOPATHIC PULMONARY FIBROSIS
     Route: 048
     Dates: start: 20200213

REACTIONS (8)
  - Asthenia [Not Recovered/Not Resolved]
  - Productive cough [Unknown]
  - Constipation [Unknown]
  - Decreased activity [Unknown]
  - Musculoskeletal pain [Unknown]
  - Hot flush [Unknown]
  - Arthralgia [Not Recovered/Not Resolved]
  - Nausea [Unknown]

NARRATIVE: CASE EVENT DATE: 20200317
